FAERS Safety Report 7927052 (Version 4)
Quarter: 2013Q4

REPORT INFORMATION
  Report Type: Spontaneous
  Country: US (occurrence: US)
  Receive Date: 20110502
  Receipt Date: 20131121
  Transmission Date: 20140711
  Serious: Yes (Hospitalization, Other)
  Sender: FDA-Public Use
  Company Number: US-ASTRAZENECA-2011SE04646

PATIENT
  Age: 70 Year
  Sex: Female
  Weight: 107.5 kg

DRUGS (12)
  1. NEXIUM [Suspect]
     Indication: GASTROOESOPHAGEAL REFLUX DISEASE
     Route: 048
  2. NEXIUM [Suspect]
     Indication: GASTROOESOPHAGEAL REFLUX DISEASE
     Route: 048
     Dates: start: 2010, end: 201310
  3. ZOLOFT [Concomitant]
     Indication: DEPRESSION
     Route: 048
     Dates: start: 2003
  4. PRAVASTATIN [Concomitant]
     Indication: BLOOD CHOLESTEROL
     Route: 048
  5. POTASSIUM CHLORIDE [Concomitant]
     Route: 048
     Dates: start: 2004
  6. WATER PILL [Concomitant]
     Indication: BLOOD PRESSURE ABNORMAL
     Dosage: 75-50 MG DAILY
     Route: 048
     Dates: start: 2003
  7. LANTUS INSULINE [Concomitant]
     Indication: DIABETES MELLITUS
     Dosage: 35 UNITS DAILY
     Route: 058
     Dates: start: 2009
  8. GABAPENTIN [Concomitant]
     Indication: NEURALGIA
     Route: 048
     Dates: start: 2009
  9. BUT/APAP/CF [Concomitant]
     Indication: DIABETIC NEUROPATHY
     Dates: start: 2009
  10. NADOL [Concomitant]
     Indication: DIABETIC NEUROPATHY
     Dates: start: 2009
  11. TRAMADOL HCL [Concomitant]
     Indication: PROCEDURAL PAIN
     Route: 048
     Dates: start: 201307
  12. HUMALOG [Concomitant]
     Indication: DIABETES MELLITUS
     Dosage: 10 UNITS THREE TIMES A DAY
     Route: 058
     Dates: start: 2010

REACTIONS (11)
  - Haematemesis [Unknown]
  - Varices oesophageal [Not Recovered/Not Resolved]
  - Oesophageal varices haemorrhage [Unknown]
  - Erosive oesophagitis [Unknown]
  - Gastrooesophageal reflux disease [Unknown]
  - Arthritis [Not Recovered/Not Resolved]
  - Liver disorder [Unknown]
  - Hepatic cirrhosis [Unknown]
  - Aggression [Unknown]
  - Intentional drug misuse [Unknown]
  - Drug dose omission [Not Recovered/Not Resolved]
